FAERS Safety Report 15296401 (Version 3)
Quarter: 2020Q4

REPORT INFORMATION
  Report Type: Spontaneous
  Country: US (occurrence: US)
  Receive Date: 20180820
  Receipt Date: 20201009
  Transmission Date: 20210113
  Serious: No
  Sender: FDA-Public Use
  Company Number: US-BAYER-2018-150590

PATIENT
  Age: 63 Year
  Sex: Female

DRUGS (6)
  1. GADAVIST [Suspect]
     Active Substance: GADOBUTROL
     Indication: MAGNETIC RESONANCE IMAGING
     Dosage: UNK UNK, ONCE (19CC)
     Route: 042
     Dates: start: 20100812, end: 20100812
  2. GADAVIST [Suspect]
     Active Substance: GADOBUTROL
     Indication: BRAIN NEOPLASM
     Dosage: UNK UNK, ONCE (9.5CC)
     Route: 042
     Dates: start: 20141203, end: 20141203
  3. GADAVIST [Suspect]
     Active Substance: GADOBUTROL
     Indication: MAGNETIC RESONANCE IMAGING
     Dosage: UNK UNK, ONCE (9CC)
     Route: 042
     Dates: start: 20170902, end: 20170902
  4. MAGNEVIST [Suspect]
     Active Substance: GADOPENTETATE DIMEGLUMINE
     Dosage: UNK UNK, ONCE (19CC)
     Route: 042
     Dates: start: 20100812, end: 20100812
  5. MAGNEVIST [Suspect]
     Active Substance: GADOPENTETATE DIMEGLUMINE
     Dosage: UNK UNK, ONCE (3CC)
     Route: 042
     Dates: start: 20090822, end: 20090822
  6. GADOLINIUM IN UNSPECIFIED DRUG [Suspect]
     Active Substance: GADOLINIUM
     Indication: MAGNETIC RESONANCE IMAGING BRAIN
     Dosage: UNK
     Dates: start: 20080303, end: 20080303

REACTIONS (8)
  - Arthralgia [None]
  - Muscle spasms [None]
  - Pruritus allergic [None]
  - Alopecia [None]
  - Pain in extremity [None]
  - Insomnia [None]
  - Skin burning sensation [None]
  - Muscle twitching [None]
